FAERS Safety Report 8510942-3 (Version None)
Quarter: 2012Q3

REPORT INFORMATION
  Report Type: 
  Country: None (occurrence: None)
  Receive Date: 20120716
  Receipt Date: 20120131
  Transmission Date: 20120928
  Serious: Yes (Hospitalization, Other)
  Sender: FDA-Public Use
  Company Number: US-JNJCP-30000088969

PATIENT
  Age: 22 Month
  Sex: Male
  Weight: 16 kg

DRUGS (2)
  1. AVEENO BABY CALMING COMFORT LOTION USA ABCCLTUS [Suspect]
     Indication: DRY SKIN
     Dosage: QUARTER SIZE AMOUNT, TWICE A DAY
     Route: 061
     Dates: end: 20120123
  2. NONE [Concomitant]

REACTIONS (1)
  - SKIN BACTERIAL INFECTION [None]
